FAERS Safety Report 11779120 (Version 1)
Quarter: 2015Q4

REPORT INFORMATION
  Report Type: Report from Study
  Country: US (occurrence: US)
  Receive Date: 20151125
  Receipt Date: 20151125
  Transmission Date: 20160304
  Serious: Yes (Other)
  Sender: FDA-Public Use
  Company Number: US-JNJFOC-20150924708

PATIENT
  Age: 56 Year
  Sex: Male

DRUGS (21)
  1. IMBRUVICA [Suspect]
     Active Substance: IBRUTINIB
     Indication: PLATELET COUNT DECREASED
     Route: 048
  2. IMBRUVICA [Suspect]
     Active Substance: IBRUTINIB
     Indication: THERAPY NAIVE
     Route: 048
  3. IMBRUVICA [Suspect]
     Active Substance: IBRUTINIB
     Indication: THERAPY NAIVE
     Route: 048
  4. IMBRUVICA [Suspect]
     Active Substance: IBRUTINIB
     Indication: THERAPY NAIVE
     Route: 048
  5. IMBRUVICA [Suspect]
     Active Substance: IBRUTINIB
     Indication: PLATELET COUNT DECREASED
     Route: 048
     Dates: start: 20150908, end: 20151013
  6. VALTREX [Concomitant]
     Active Substance: VALACYCLOVIR HYDROCHLORIDE
     Indication: PROPHYLAXIS
  7. VITAMIN D [Concomitant]
     Active Substance: CHOLECALCIFEROL
     Dosage: 200 UNIT
  8. IMBRUVICA [Suspect]
     Active Substance: IBRUTINIB
     Indication: CHRONIC LYMPHOCYTIC LEUKAEMIA
     Route: 048
     Dates: start: 20150908, end: 20151013
  9. ENTECAVIR. [Concomitant]
     Active Substance: ENTECAVIR
     Indication: HEPATITIS B
     Dates: start: 20150908
  10. IMBRUVICA [Suspect]
     Active Substance: IBRUTINIB
     Indication: LEUKOCYTOSIS
     Route: 048
  11. IMBRUVICA [Suspect]
     Active Substance: IBRUTINIB
     Indication: LEUKOCYTOSIS
     Route: 048
  12. IMBRUVICA [Suspect]
     Active Substance: IBRUTINIB
     Indication: THERAPY NAIVE
     Route: 048
     Dates: start: 20150908, end: 20151013
  13. IMBRUVICA [Suspect]
     Active Substance: IBRUTINIB
     Indication: CHRONIC LYMPHOCYTIC LEUKAEMIA
     Route: 048
  14. IMBRUVICA [Suspect]
     Active Substance: IBRUTINIB
     Indication: LEUKOCYTOSIS
     Route: 048
  15. IMBRUVICA [Suspect]
     Active Substance: IBRUTINIB
     Indication: CHRONIC LYMPHOCYTIC LEUKAEMIA
     Route: 048
  16. IMBRUVICA [Suspect]
     Active Substance: IBRUTINIB
     Indication: LEUKOCYTOSIS
     Route: 048
     Dates: start: 20150908, end: 20151013
  17. IMBRUVICA [Suspect]
     Active Substance: IBRUTINIB
     Indication: CHRONIC LYMPHOCYTIC LEUKAEMIA
     Route: 048
  18. TENOFOVIR [Concomitant]
     Active Substance: TENOFOVIR
     Dates: start: 201510
  19. IMBRUVICA [Suspect]
     Active Substance: IBRUTINIB
     Indication: PLATELET COUNT DECREASED
     Route: 048
  20. IMBRUVICA [Suspect]
     Active Substance: IBRUTINIB
     Indication: PLATELET COUNT DECREASED
     Route: 048
  21. VIAGRA [Concomitant]
     Active Substance: SILDENAFIL CITRATE

REACTIONS (9)
  - Mucosal haemorrhage [Unknown]
  - Haemoglobin decreased [Unknown]
  - Liver function test abnormal [Unknown]
  - Platelet count decreased [Unknown]
  - Epistaxis [Unknown]
  - Haematoma [Unknown]
  - Blood bilirubin increased [Unknown]
  - Haematocrit decreased [Unknown]
  - Haemoptysis [Unknown]

NARRATIVE: CASE EVENT DATE: 2015
